FAERS Safety Report 6004394-5 (Version None)
Quarter: 2008Q4

REPORT INFORMATION
  Report Type: 
  Country: None (occurrence: None)
  Receive Date: 20081216
  Receipt Date: 20071218
  Transmission Date: 20090506
  Serious: No
  Sender: FDA-Public Use
  Company Number: US-AMGEN-KDL257398

PATIENT
  Sex: Male

DRUGS (3)
  1. ENBREL [Suspect]
     Indication: PSORIASIS
     Route: 058
     Dates: start: 20060101
  2. TRIAMCINOLONE [Concomitant]
  3. DERMA-SMOOTHE/FS [Concomitant]
     Route: 061

REACTIONS (1)
  - DRUG INEFFECTIVE [None]
